FAERS Safety Report 19682848 (Version 1)
Quarter: 2021Q3

REPORT INFORMATION
  Report Type: Spontaneous
  Country: US (occurrence: US)
  Receive Date: 20210810
  Receipt Date: 20210810
  Transmission Date: 20211014
  Serious: No
  Sender: FDA-Public Use
  Company Number: US-TAKEDA-2021TUS048388

PATIENT

DRUGS (2)
  1. CEPROTIN [Suspect]
     Active Substance: PROTEIN C
     Indication: DISSEMINATED INTRAVASCULAR COAGULATION
  2. CEPROTIN [Suspect]
     Active Substance: PROTEIN C
     Indication: PROTEIN C DEFICIENCY
     Route: 065

REACTIONS (2)
  - Off label use [Unknown]
  - No adverse event [Unknown]
